FAERS Safety Report 10404579 (Version 1)
Quarter: 2014Q2

REPORT INFORMATION
  Report Type: Spontaneous
  Country: US (occurrence: None)
  Receive Date: 20140528
  Receipt Date: 20140528
  Transmission Date: 20141212
  Serious: Yes (Hospitalization)
  Sender: FDA-Public Use
  Company Number: 1318792

PATIENT
  Age: 51 Year
  Sex: Male

DRUGS (7)
  1. VALCYTE (VALGANCICLOVIR HYDROCHLORIDE) (VALGANCICLOVIR HYDROCHLORIDE) [Suspect]
     Indication: RENAL TRANSPLANT
     Route: 048
     Dates: start: 20100304, end: 2012
  2. ASACOL (MESALAZINE) MODIFIED-RELEASE TABLET, 400 MG [Concomitant]
  3. MYFORTIC (MYCOPHENOLATE SODIUM) [Concomitant]
  4. PROGRAF (TACROLIMUS) [Concomitant]
  5. PREDNISONE [Concomitant]
  6. CARVEDILOL [Concomitant]
  7. PROTONIX (UNITED STATES) (PANTOPRAZOLE SODIUM) [Concomitant]

REACTIONS (6)
  - Cytomegalovirus infection [None]
  - Infection [None]
  - Myelodysplastic syndrome [None]
  - Colitis [None]
  - Haemorrhage [None]
  - Anaemia [None]
